FAERS Safety Report 22591082 (Version 1)
Quarter: 2023Q2

REPORT INFORMATION
  Report Type: Spontaneous
  Country: US (occurrence: US)
  Receive Date: 20230612
  Receipt Date: 20230612
  Transmission Date: 20230721
  Serious: No
  Sender: FDA-Public Use
  Company Number: US-MYLANLABS-2023M1054357

PATIENT
  Sex: Female
  Weight: 60.33 kg

DRUGS (13)
  1. EMSAM [Suspect]
     Active Substance: SELEGILINE
     Indication: Depression
     Dosage: 9 MILLIGRAM, QH
     Route: 062
  2. EMSAM [Suspect]
     Active Substance: SELEGILINE
     Dosage: 6 MILLIGRAM, QH
     Route: 062
  3. LEVOTHYROXINE [Concomitant]
     Active Substance: LEVOTHYROXINE
     Dosage: 100 MILLIGRAM
     Route: 065
  4. PANTOPRAZOLE [Concomitant]
     Active Substance: PANTOPRAZOLE
     Dosage: 40 MILLIGRAM, Q2D
     Route: 065
  5. LEVOMEFOLIC ACID [Concomitant]
     Active Substance: LEVOMEFOLIC ACID
     Dosage: 15 MILLIGRAM, QD
     Route: 065
  6. FISH OIL [Concomitant]
     Active Substance: FISH OIL
     Dosage: 1200 MILLIGRAM, QD
     Route: 065
  7. VITAMIN D3 [Concomitant]
     Active Substance: CHOLECALCIFEROL
     Dosage: 50 MICROGRAM, Q3W
     Route: 065
  8. MINERALS\VITAMINS [Concomitant]
     Active Substance: MINERALS\VITAMINS
     Dosage: UNK,QD
     Route: 065
  9. BELSOMRA [Concomitant]
     Active Substance: SUVOREXANT
     Dosage: 20 MICROGRAM, QD
     Route: 065
  10. HYDROXYZINE [Concomitant]
     Active Substance: HYDROXYZINE HYDROCHLORIDE
     Dosage: 25 MILLIGRAM, QD
     Route: 065
  11. TYLENOL [Concomitant]
     Active Substance: ACETAMINOPHEN
     Dosage: UNK
     Route: 065
  12. FLUTICASONE [Concomitant]
     Active Substance: FLUTICASONE
     Dosage: UNK
     Route: 065
  13. AFRIN [Concomitant]
     Active Substance: OXYMETAZOLINE
     Dosage: UNK
     Route: 065

REACTIONS (8)
  - Depression [Unknown]
  - Tinnitus [Unknown]
  - Neck pain [Unknown]
  - Pain in extremity [Unknown]
  - Dizziness [Unknown]
  - Headache [Unknown]
  - Wrong technique in product usage process [Unknown]
  - Labelled drug-food interaction medication error [Unknown]
